FAERS Safety Report 22075489 (Version 3)
Quarter: 2023Q2

REPORT INFORMATION
  Report Type: Spontaneous
  Country: US (occurrence: US)
  Receive Date: 20230308
  Receipt Date: 20230509
  Transmission Date: 20230722
  Serious: No
  Sender: FDA-Public Use
  Company Number: US-BoehringerIngelheim-2022-BI-177600

PATIENT
  Age: 68 Year
  Sex: Female

DRUGS (2)
  1. COMBIVENT [Suspect]
     Active Substance: ALBUTEROL SULFATE\IPRATROPIUM BROMIDE
     Indication: Product used for unknown indication
     Dosage: 2 PUFFS Q 6H
     Route: 048
     Dates: start: 2023
  2. COMBIVENT [Suspect]
     Active Substance: ALBUTEROL SULFATE\IPRATROPIUM BROMIDE
     Dosage: 20-100 MCG/ACT 1 PUFF EVERY 4-6 HOURS
     Route: 048

REACTIONS (6)
  - Intentional product misuse [Unknown]
  - Total lung capacity abnormal [Unknown]
  - Panic reaction [Unknown]
  - Intentional product use issue [Not Recovered/Not Resolved]
  - Mental disorder [Unknown]
  - Dyspnoea [Unknown]

NARRATIVE: CASE EVENT DATE: 20230101
